FAERS Safety Report 24845023 (Version 3)
Quarter: 2025Q1

REPORT INFORMATION
  Report Type: Spontaneous
  Country: CN (occurrence: CN)
  Receive Date: 20250115
  Receipt Date: 20250123
  Transmission Date: 20250409
  Serious: Yes (Death, Other)
  Sender: PFIZER
  Company Number: CN-PFIZER INC-PV202500004688

PATIENT
  Age: 50 Year
  Sex: Female

DRUGS (1)
  1. METHOTREXATE SODIUM [Suspect]
     Active Substance: METHOTREXATE SODIUM
     Indication: Rheumatoid arthritis
     Route: 048

REACTIONS (12)
  - Toxicity to various agents [Fatal]
  - Haemorrhage intracranial [Fatal]
  - Thrombocytopenia [Fatal]
  - Mouth ulceration [Unknown]
  - Pyrexia [Unknown]
  - Skin ulcer [Unknown]
  - Pancytopenia [Unknown]
  - Liver injury [Unknown]
  - Epidermolysis bullosa [Unknown]
  - Drug eruption [Unknown]
  - Hepatic failure [Unknown]
  - Off label use [Unknown]
